FAERS Safety Report 22163091 (Version 1)
Quarter: 2023Q2

REPORT INFORMATION
  Report Type: Spontaneous
  Country: US (occurrence: US)
  Receive Date: 20230401
  Receipt Date: 20230401
  Transmission Date: 20230721
  Serious: No
  Sender: FDA-Public Use
  Company Number: US-ELI_LILLY_AND_COMPANY-US202303017240

PATIENT
  Age: 81 Year
  Sex: Male

DRUGS (1)
  1. TRULICITY [Suspect]
     Active Substance: DULAGLUTIDE
     Indication: Product used for unknown indication
     Dosage: UNK UNK, WEEKLY (1/W)
     Route: 065
     Dates: start: 202302

REACTIONS (2)
  - Somnolence [Unknown]
  - Fatigue [Unknown]

NARRATIVE: CASE EVENT DATE: 20230301
